FAERS Safety Report 5860503-X (Version None)
Quarter: 2008Q3

REPORT INFORMATION
  Report Type: 
  Country: None (occurrence: None)
  Receive Date: 20080827
  Receipt Date: 20080122
  Transmission Date: 20090109
  Serious: No
  Sender: FDA-Public Use
  Company Number: US-ABBOTT-07P-163-0418348-00

PATIENT
  Sex: Male
  Weight: 99 kg

DRUGS (3)
  1. NIASPAN [Suspect]
     Indication: BLOOD CHOLESTEROL
     Dosage: COATED(ORANGE)
     Route: 048
     Dates: start: 20070801
  2. NIASPAN [Suspect]
     Dosage: NON-COATED(WHITE)
     Dates: start: 20060101, end: 20070801
  3. AMLODIPINE [Concomitant]
     Indication: HYPERTENSION
     Route: 048

REACTIONS (1)
  - FLUSHING [None]
